FAERS Safety Report 6882393-9 (Version None)
Quarter: 2010Q3

REPORT INFORMATION
  Report Type: 
  Country: None (occurrence: None)
  Receive Date: 20100727
  Receipt Date: 20100716
  Transmission Date: 20110219
  Serious: Yes (Other)
  Sender: FDA-Public Use
  Company Number: 2010US002834

PATIENT
  Age: 59 Year
  Sex: Male
  Weight: 63 kg

DRUGS (3)
  1. PROGRAF [Suspect]
     Indication: LIVER TRANSPLANT
     Dosage: 2 MG, UID/QD, ORAL
     Route: 048
     Dates: start: 20020825
  2. CELLCEPT [Concomitant]
  3. LISINOPIRL (LISINOPIRL) [Concomitant]

REACTIONS (5)
  - BLOOD CREATININE INCREASED [None]
  - DISEASE PROGRESSION [None]
  - GLOMERULAR FILTRATION RATE DECREASED [None]
  - HEPATITIS C [None]
  - VIRAL LOAD INCREASED [None]
